FAERS Safety Report 9086414 (Version 1)
Quarter: 2013Q1

REPORT INFORMATION
  Report Type: Report from Study
  Country: US (occurrence: US)
  Receive Date: 20130131
  Receipt Date: 20130131
  Transmission Date: 20140127
  Serious: No
  Sender: FDA-Public Use
  Company Number: US-ABBOTT-12P-163-1011725-00

PATIENT
  Sex: Female

DRUGS (1)
  1. HUMIRA [Suspect]
     Indication: CROHN^S DISEASE
     Route: 058
     Dates: start: 201208

REACTIONS (7)
  - Oropharyngeal pain [Unknown]
  - Bladder disorder [Unknown]
  - Cough [Unknown]
  - Headache [Unknown]
  - Eye swelling [Unknown]
  - Eye irritation [Unknown]
  - VIIth nerve paralysis [Unknown]
